FAERS Safety Report 6978400-5 (Version None)
Quarter: 2010Q3

REPORT INFORMATION
  Report Type: 
  Country: None (occurrence: None)
  Receive Date: 20100913
  Receipt Date: 20100903
  Transmission Date: 20110219
  Serious: Yes (Hospitalization)
  Sender: FDA-Public Use
  Company Number: IT-BRISTOL-MYERS SQUIBB COMPANY-15220064

PATIENT
  Age: 57 Year
  Sex: Male

DRUGS (1)
  1. BARACLUDE [Suspect]
     Indication: HEPATITIS B
     Dates: start: 20100510, end: 20100601

REACTIONS (2)
  - ABDOMINAL PAIN UPPER [None]
  - HEPATIC NEOPLASM MALIGNANT [None]
